FAERS Safety Report 21436743 (Version 3)
Quarter: 2022Q4

REPORT INFORMATION
  Report Type: Spontaneous
  Country: US (occurrence: US)
  Receive Date: 20221010
  Receipt Date: 20221205
  Transmission Date: 20230112
  Serious: Yes (Disabling, Other)
  Sender: FDA-Public Use
  Company Number: US-009507513-2210USA000759

PATIENT
  Sex: Female

DRUGS (4)
  1. KEYTRUDA [Suspect]
     Active Substance: PEMBROLIZUMAB
     Indication: Oesophageal carcinoma
     Dosage: UNK
     Route: 042
     Dates: start: 20201010, end: 202212
  2. FAMOTIDINE [Concomitant]
     Active Substance: FAMOTIDINE
  3. PANTOPRAZOLE [Concomitant]
     Active Substance: PANTOPRAZOLE
  4. ACETAMINOPHEN\HYDROCODONE [Concomitant]
     Active Substance: ACETAMINOPHEN\HYDROCODONE

REACTIONS (14)
  - Bipolar disorder [Not Recovered/Not Resolved]
  - Arthralgia [Not Recovered/Not Resolved]
  - Myalgia [Not Recovered/Not Resolved]
  - Arthropathy [Not Recovered/Not Resolved]
  - Malaise [Not Recovered/Not Resolved]
  - Cough [Unknown]
  - Pruritus [Unknown]
  - Hyperhidrosis [Unknown]
  - Migraine [Not Recovered/Not Resolved]
  - Mouth ulceration [Unknown]
  - Eating disorder [Unknown]
  - Chapped lips [Unknown]
  - Lip haemorrhage [Unknown]
  - Economic problem [Unknown]

NARRATIVE: CASE EVENT DATE: 20200101
